FAERS Safety Report 12995116 (Version 1)
Quarter: 2016Q4

REPORT INFORMATION
  Report Type: Spontaneous
  Country: US (occurrence: US)
  Receive Date: 20161202
  Receipt Date: 20161202
  Transmission Date: 20170207
  Serious: No
  Sender: FDA-Public Use
  Company Number: US-PFIZER INC-2016552838

PATIENT
  Age: 77 Year
  Sex: Female

DRUGS (3)
  1. ATENOLOL. [Interacting]
     Active Substance: ATENOLOL
     Dosage: 50 MG, DAILY
     Route: 048
  2. IBUPROFEN. [Suspect]
     Active Substance: IBUPROFEN
     Dosage: UNK
  3. HYDROCHLOROTHIAZIDE W/TRIAMTERENE [Interacting]
     Active Substance: HYDROCHLOROTHIAZIDE\TRIAMTERENE
     Dosage: 1 DF, DAILY

REACTIONS (2)
  - Drug interaction [Unknown]
  - Contraindicated product administered [Unknown]
